FAERS Safety Report 4653302-8 (Version None)
Quarter: 2005Q2

REPORT INFORMATION
  Report Type: 
  Country: None (occurrence: None)
  Receive Date: 20050503
  Receipt Date: 20050428
  Transmission Date: 20051028
  Serious: Yes (Other)
  Sender: FDA-Public Use
  Company Number: TCI2005A01404

PATIENT
  Age: 75 Year
  Sex: Male

DRUGS (5)
  1. LANSAP 800 (LANSOPRAZOLE, CLARITHROMYCIN, AMOXICILLIN) (PREPARATION FO [Suspect]
     Dosage: SEE IMAGE
     Route: 048
     Dates: start: 20041105, end: 20041102
  2. LANSAP 800 (LANSOPRAZOLE, CLARITHROMYCIN, AMOXICILLIN) (PREPARATION FO [Suspect]
     Dosage: SEE IMAGE
     Route: 048
     Dates: start: 20041106, end: 20041106
  3. TEGRETOL [Concomitant]
  4. DEPAS (ETIZOLAM) [Concomitant]
  5. JUVELA (NICOTINATE (TOCOPHERYL NICOTINATE) [Concomitant]

REACTIONS (12)
  - ABDOMINAL PAIN LOWER [None]
  - ABDOMINAL PAIN UPPER [None]
  - CONDITION AGGRAVATED [None]
  - DIARRHOEA [None]
  - EATING DISORDER [None]
  - GASTRIC ULCER [None]
  - HELICOBACTER INFECTION [None]
  - ORAL INTAKE REDUCED [None]
  - PYLORIC STENOSIS [None]
  - THERAPY NON-RESPONDER [None]
  - VOMITING [None]
  - WEIGHT DECREASED [None]
